FAERS Safety Report 17797387 (Version 1)
Quarter: 2020Q2

REPORT INFORMATION
  Report Type: Spontaneous
  Country: US (occurrence: US)
  Receive Date: 20200515
  Receipt Date: 20200515
  Transmission Date: 20200714
  Serious: Yes (Life-Threatening, Hospitalization, Other)
  Sender: FDA-Public Use
  Company Number: None

PATIENT
  Age: 30 Year
  Sex: Male
  Weight: 81 kg

DRUGS (10)
  1. TRU FIBER [Concomitant]
  2. MOTIL PRO [Concomitant]
  3. FISH OIL [Concomitant]
     Active Substance: FISH OIL
  4. CIPROFLOXACIN. [Suspect]
     Active Substance: CIPROFLOXACIN
     Indication: PROSTATITIS
     Dates: start: 20180701, end: 20180721
  5. LCIUM BUTYRATE [Concomitant]
  6. BODYBIO PC [Concomitant]
  7. K-FORCE [Concomitant]
  8. MAGNESIUM [Concomitant]
     Active Substance: MAGNESIUM
  9. PRO-BIOTIC [Concomitant]
  10. MULTIVITAMIN [Concomitant]
     Active Substance: VITAMINS

REACTIONS (22)
  - Cyanosis [None]
  - Amnesia [None]
  - Neuralgia [None]
  - Brain injury [None]
  - Nausea [None]
  - Eye disorder [None]
  - Tendon injury [None]
  - Cerebrospinal fluid leakage [None]
  - Eating disorder [None]
  - Gastrointestinal pain [None]
  - Constipation [None]
  - Fatigue [None]
  - Abdominal distension [None]
  - Syncope [None]
  - Food allergy [None]
  - Gastrooesophageal reflux disease [None]
  - Headache [None]
  - Depersonalisation/derealisation disorder [None]
  - Photophobia [None]
  - Anxiety [None]
  - Depression [None]
  - Nerve injury [None]

NARRATIVE: CASE EVENT DATE: 20180701
